FAERS Safety Report 4863490-6 (Version None)
Quarter: 2005Q4

REPORT INFORMATION
  Report Type: 
  Country: None (occurrence: None)
  Receive Date: 20051222
  Receipt Date: 20050307
  Transmission Date: 20060501
  Serious: No
  Sender: FDA-Public Use
  Company Number: US-GLAXOSMITHKLINE-A0548596A

PATIENT
  Age: 4 Year
  Sex: Female

DRUGS (2)
  1. FLONASE [Suspect]
     Dosage: 2SPR PER DAY
     Route: 045
     Dates: start: 20050304, end: 20050304
  2. NO CONCURRENT MEDICATION [Concomitant]

REACTIONS (7)
  - AURICULAR SWELLING [None]
  - DISORIENTATION [None]
  - INSOMNIA [None]
  - IRRITABILITY [None]
  - NERVOUSNESS [None]
  - RESTLESSNESS [None]
  - URTICARIA [None]
